FAERS Safety Report 16974487 (Version 2)
Quarter: 2019Q4

REPORT INFORMATION
  Report Type: Report from Study
  Country: None (occurrence: TR)
  Receive Date: 20191030
  Receipt Date: 20191116
  Transmission Date: 20200122
  Serious: Yes (Hospitalization)
  Sender: FDA-Public Use
  Company Number: TR-ABBVIE-19K-161-2973212-00

PATIENT
  Age: 44 Year
  Sex: Male
  Weight: 55 kg

DRUGS (1)
  1. DUODOPA [Suspect]
     Active Substance: CARBIDOPA\LEVODOPA
     Indication: PARKINSON^S DISEASE
     Dosage: MORNING DOSE (ML): 7.00 CONTINUOUS DOSE (ML): 5.10 EXTRA DOSE (ML): 1.00
     Route: 050
     Dates: start: 20181030

REACTIONS (4)
  - Hypophagia [Recovered/Resolved]
  - Pneumonia aspiration [Recovered/Resolved]
  - Dysphagia [Recovered/Resolved]
  - Weight decreased [Recovered/Resolved]

NARRATIVE: CASE EVENT DATE: 20181110
